FAERS Safety Report 9409455 (Version 3)
Quarter: 2013Q3

REPORT INFORMATION
  Report Type: Report from Study
  Country: US (occurrence: US)
  Receive Date: 20130719
  Receipt Date: 20130804
  Transmission Date: 20140515
  Serious: Yes (Hospitalization)
  Sender: FDA-Public Use
  Company Number: US-MERCK-1307USA009842

PATIENT
  Age: 68 Year
  Sex: Male
  Weight: 78.74 kg

DRUGS (4)
  1. VORINOSTAT [Suspect]
     Indication: MYELODYSPLASTIC SYNDROME
     Dosage: 300 MG, BID ON DAYS 3-9 (28 DAYS CYCLE) CYCLE 1
     Route: 048
     Dates: start: 20130616, end: 20130622
  2. VORINOSTAT [Suspect]
     Dosage: 300 MG, BID ON DAYS 3-9 (28 DAYS CYCLE) CYCLE 2
     Route: 048
     Dates: start: 20130713, end: 20130713
  3. AZACITIDINE [Suspect]
     Indication: MYELODYSPLASTIC SYNDROME
     Dosage: 75 MG/M2, ON DAYS 1-7 OR ON DAYS 1-5 AND DAYS 8-9 (28 DAYS CYCLE)
     Dates: start: 20130613
  4. AZACITIDINE [Suspect]
     Dosage: 75 MG/M2, ON DAYS 1-7 OR ON DAYS 1-5 AND DAYS 8-9 (28 DAYS CYCLE)
     Dates: start: 20130710, end: 20130713

REACTIONS (2)
  - Abdominal pain [Recovered/Resolved]
  - Back pain [Recovered/Resolved]
